FAERS Safety Report 8332173-2 (Version None)
Quarter: 2012Q2

REPORT INFORMATION
  Report Type: 
  Country: None (occurrence: None)
  Receive Date: 20120503
  Receipt Date: 20120424
  Transmission Date: 20120825
  Serious: Yes (Hospitalization)
  Sender: FDA-Public Use
  Company Number: US-BIOGENIDEC-2012BI003880

PATIENT
  Age: 51 Year
  Sex: Male

DRUGS (1)
  1. TYSABRI [Suspect]
     Indication: MULTIPLE SCLEROSIS
     Route: 042
     Dates: start: 20091202, end: 20111221

REACTIONS (13)
  - ABDOMINAL DISCOMFORT [None]
  - ASTHENIA [None]
  - OEDEMA PERIPHERAL [None]
  - ABDOMINAL DISTENSION [None]
  - DEPRESSED LEVEL OF CONSCIOUSNESS [None]
  - MUSCLE SPASTICITY [None]
  - FATIGUE [None]
  - CYSTITIS [None]
  - AREFLEXIA [None]
  - MULTIPLE SCLEROSIS [None]
  - OVERDOSE [None]
  - BACK PAIN [None]
  - INSULIN-REQUIRING TYPE 2 DIABETES MELLITUS [None]
